FAERS Safety Report 6809440-4 (Version None)
Quarter: 2010Q2

REPORT INFORMATION
  Report Type: 
  Country: None (occurrence: None)
  Receive Date: 20100625
  Receipt Date: 20100616
  Transmission Date: 20101027
  Serious: Yes (Death)
  Sender: FDA-Public Use
  Company Number: 1000014524

PATIENT
  Age: 51 Year
  Sex: Female
  Weight: 66.2252 kg

DRUGS (1)
  1. MILNACIPRAN (MILNACIPRAN HYDROCHLORIDE) [Suspect]

REACTIONS (2)
  - COMPLETED SUICIDE [None]
  - DRUG SCREEN POSITIVE [None]
